FAERS Safety Report 4783019-0 (Version None)
Quarter: 2005Q3

REPORT INFORMATION
  Report Type: 
  Country: None (occurrence: None)
  Receive Date: 20050928
  Receipt Date: 20050928
  Transmission Date: 20060218
  Serious: Yes (Other)
  Sender: FDA-Public Use
  Company Number: None

PATIENT
  Age: 8 Year
  Sex: Female
  Weight: 40.8237 kg

DRUGS (2)
  1. ELIXSURE IB ORAL SUSPENSION 5ML TARO PHARMACEUTICALS USA [Suspect]
     Indication: HEADACHE
     Dosage: 5ML 1 TIME PO
     Route: 048
     Dates: start: 20050926, end: 20050926
  2. ELIXSURE IB ORAL SUSPENSION 5ML TARO PHARMACEUTICALS USA [Suspect]
     Indication: PYREXIA
     Dosage: 5ML 1 TIME PO
     Route: 048
     Dates: start: 20050926, end: 20050926

REACTIONS (8)
  - COUGH [None]
  - GLOSSODYNIA [None]
  - HYPOAESTHESIA ORAL [None]
  - MALAISE [None]
  - ORAL DISCOMFORT [None]
  - PHARMACEUTICAL PRODUCT COMPLAINT [None]
  - SCREAMING [None]
  - THROAT IRRITATION [None]
